FAERS Safety Report 11679395 (Version 2)
Quarter: 2015Q4

REPORT INFORMATION
  Report Type: Spontaneous
  Country: US (occurrence: US)
  Receive Date: 20151027
  Receipt Date: 20151104
  Transmission Date: 20160304
  Serious: No
  Sender: FDA-Public Use
  Company Number: US-ELI_LILLY_AND_COMPANY-US201009007899

PATIENT
  Age: 77 Year
  Sex: Female

DRUGS (1)
  1. FORTEO [Suspect]
     Active Substance: TERIPARATIDE
     Indication: OSTEOPOROSIS
     Dosage: 20 UG, DAILY (1/D)
     Route: 065
     Dates: start: 20100909

REACTIONS (8)
  - Blood pressure decreased [Unknown]
  - Injection site pain [Unknown]
  - Headache [Unknown]
  - Feeling abnormal [Unknown]
  - Tremor [Unknown]
  - Blood pressure fluctuation [Unknown]
  - Heart rate increased [Unknown]
  - Hunger [Unknown]

NARRATIVE: CASE EVENT DATE: 201009
